FAERS Safety Report 5723293-7 (Version None)
Quarter: 2008Q2

REPORT INFORMATION
  Report Type: 
  Country: None (occurrence: None)
  Receive Date: 20080430
  Receipt Date: 20080305
  Transmission Date: 20081010
  Serious: No
  Sender: FDA-Public Use
  Company Number: US-ASTRAZENECA-2008UW04509

PATIENT
  Age: 30 Year
  Sex: Male
  Weight: 81.6 kg

DRUGS (4)
  1. NEXIUM [Suspect]
     Route: 048
  2. KEPPRA [Concomitant]
  3. LAMICTAL [Concomitant]
  4. VALIUM [Concomitant]

REACTIONS (1)
  - FALSE POSITIVE LABORATORY RESULT [None]
